FAERS Safety Report 17608603 (Version 7)
Quarter: 2022Q3

REPORT INFORMATION
  Report Type: Spontaneous
  Country: DE (occurrence: DE)
  Receive Date: 20200401
  Receipt Date: 20220901
  Transmission Date: 20221026
  Serious: Yes (Life-Threatening, Hospitalization, Other)
  Sender: FDA-Public Use
  Company Number: None

PATIENT
  Age: 68 Year
  Sex: Male
  Weight: 77 kg

DRUGS (21)
  1. ALLOPURINOL [Interacting]
     Active Substance: ALLOPURINOL
     Indication: Gout
     Dates: start: 201808
  2. RAMIPRIL [Interacting]
     Active Substance: RAMIPRIL
     Indication: Hypertension
     Dosage: 1-0-1
     Route: 065
     Dates: start: 201808
  3. SIMVASTATIN [Interacting]
     Active Substance: SIMVASTATIN
     Indication: Blood cholesterol
     Dosage: 0-0-1
     Route: 065
     Dates: start: 201808
  4. SIMVASTATIN [Interacting]
     Active Substance: SIMVASTATIN
     Indication: Coronary artery disease
     Dosage: 0-0-1
     Route: 065
     Dates: start: 201808
  5. SIMVASTATIN [Interacting]
     Active Substance: SIMVASTATIN
     Indication: Hypertension
     Dosage: 0-0-1
     Route: 065
     Dates: start: 201808
  6. SIMVASTATIN [Interacting]
     Active Substance: SIMVASTATIN
     Indication: Gout
     Dosage: 0-0-1
     Route: 048
     Dates: start: 20110506
  7. SIMVASTATIN [Interacting]
     Active Substance: SIMVASTATIN
     Indication: Diabetes mellitus
     Dosage: 10 MILLIGRAM, DAILY
     Route: 065
     Dates: start: 201808
  8. SPIRONOLACTONE [Interacting]
     Active Substance: SPIRONOLACTONE
     Indication: Cardiac disorder
     Dosage: 1-0-0
     Route: 065
     Dates: start: 201808
  9. SPIRONOLACTONE [Interacting]
     Active Substance: SPIRONOLACTONE
     Indication: Coronary artery disease
     Dosage: 1-0-0
     Route: 048
     Dates: start: 20110506
  10. INSULIN GLARGINE [Interacting]
     Active Substance: INSULIN GLARGINE
     Indication: Diabetes mellitus
     Dosage: 15 IU IN THE EVENING (15 IE ABENDS)
     Dates: start: 201808
  11. BENFOTIAMINE [Interacting]
     Active Substance: BENFOTIAMINE
     Indication: Cardiovascular disorder
     Dosage: 1
     Route: 065
     Dates: start: 201808
  12. BENFOTIAMINE [Interacting]
     Active Substance: BENFOTIAMINE
     Indication: Cerebrovascular accident prophylaxis
     Dosage: 1
     Route: 065
     Dates: start: 201808
  13. AVASTIN [Interacting]
     Active Substance: BEVACIZUMAB
     Indication: Diabetic retinal oedema
     Dosage: INJECT IN THE RIGHT EYE AT 13.30 (EINSPRITZEN INS RECHTE AUGE UM 13.30 UHR)
     Route: 031
     Dates: start: 20200115
  14. TORSEMIDE [Interacting]
     Active Substance: TORSEMIDE
     Indication: Renal disorder
     Dosage: 1-0-0
     Route: 065
     Dates: start: 201808
  15. IVABRADINE HYDROCHLORIDE [Interacting]
     Active Substance: IVABRADINE HYDROCHLORIDE
     Indication: Cardiac disorder
     Dosage: 1-0-0
     Route: 065
     Dates: start: 201808
  16. CARVEDILOL [Interacting]
     Active Substance: CARVEDILOL
     Indication: Cardiac disorder
     Dosage: 1-0-1
     Route: 065
     Dates: start: 201808
  17. ELIQUIS [Interacting]
     Active Substance: APIXABAN
     Indication: Atrial fibrillation
     Dosage: 1-0-1
     Route: 065
     Dates: start: 201808
  18. ELIQUIS [Interacting]
     Active Substance: APIXABAN
     Indication: Cerebrovascular accident prophylaxis
  19. JANUMET [Interacting]
     Active Substance: METFORMIN HYDROCHLORIDE\SITAGLIPTIN PHOSPHATE
     Indication: Diabetes mellitus
     Dosage: 1-0-1
     Dates: start: 201808
  20. AMLODIPINE [Suspect]
     Active Substance: AMLODIPINE BESYLATE
     Indication: Hypertension
     Dosage: 1-0-1 5 MILLIGRAM, BID
     Dates: start: 201808
  21. LEVETIRACETAM [Concomitant]
     Active Substance: LEVETIRACETAM
     Indication: Product used for unknown indication

REACTIONS (9)
  - Eye movement disorder [Recovered/Resolved]
  - Movement disorder [Recovered/Resolved]
  - Seizure [Recovered/Resolved]
  - Oculogyric crisis [Recovered/Resolved]
  - Status epilepticus [Recovering/Resolving]
  - Muscle spasms [Recovered/Resolved]
  - Drug interaction [Recovered/Resolved]
  - Off label use [Recovered/Resolved]
  - Product use issue [Recovered/Resolved]

NARRATIVE: CASE EVENT DATE: 20180801
